FAERS Safety Report 25201990 (Version 1)
Quarter: 2025Q2

REPORT INFORMATION
  Report Type: Spontaneous
  Country: CN (occurrence: CN)
  Receive Date: 20250416
  Receipt Date: 20250416
  Transmission Date: 20250717
  Serious: Yes (Hospitalization, Other)
  Sender: SANOFI AVENTIS
  Company Number: CN-SA-2025SA106497

PATIENT
  Age: 83 Year
  Sex: Male
  Weight: 57.5 kg

DRUGS (3)
  1. CLOPIDOGREL BISULFATE [Suspect]
     Active Substance: CLOPIDOGREL BISULFATE
     Indication: Coronary artery disease
     Dosage: 75 MG, QD
     Route: 048
     Dates: start: 20250312, end: 20250331
  2. INDOBUFEN [Suspect]
     Active Substance: INDOBUFEN
     Indication: Coronary artery disease
     Dosage: 0.2 G, BID
     Route: 048
     Dates: start: 20250312, end: 20250331
  3. INDOBUFEN [Suspect]
     Active Substance: INDOBUFEN
     Dosage: 0.1 G, BID
     Route: 048
     Dates: start: 20250331

REACTIONS (8)
  - Gastrooesophageal reflux disease [Recovered/Resolved]
  - Gastrointestinal haemorrhage [Recovered/Resolved]
  - Melaena [Recovered/Resolved]
  - Faeces discoloured [Recovered/Resolved]
  - Asthenia [Recovered/Resolved]
  - Decreased appetite [Recovered/Resolved]
  - Nausea [Recovered/Resolved]
  - Dyspnoea [Recovered/Resolved]

NARRATIVE: CASE EVENT DATE: 20250327
